FAERS Safety Report 5313402-6 (Version None)
Quarter: 2007Q2

REPORT INFORMATION
  Report Type: 
  Country: None (occurrence: None)
  Receive Date: 20070501
  Receipt Date: 20070423
  Transmission Date: 20071010
  Serious: Yes (Life-Threatening, Hospitalization, Other)
  Sender: FDA-Public Use
  Company Number: US-JNJFOC-20070401081

PATIENT
  Sex: Female
  Weight: 54.89 kg

DRUGS (6)
  1. REMICADE [Suspect]
     Route: 042
  2. REMICADE [Suspect]
     Indication: CROHN'S DISEASE
     Route: 042
  3. ASACOL [Concomitant]
  4. CORGARD [Concomitant]
  5. CELEXA [Concomitant]
  6. LIPITOR [Concomitant]

REACTIONS (2)
  - BILE DUCT CANCER [None]
  - METASTATIC NEOPLASM [None]
